FAERS Safety Report 15748623 (Version 2)
Quarter: 2019Q2

REPORT INFORMATION
  Report Type: Spontaneous
  Country: ES (occurrence: ES)
  Receive Date: 20181221
  Receipt Date: 20190618
  Transmission Date: 20190711
  Serious: Yes (Death, Hospitalization)
  Sender: FDA-Public Use
  Company Number: ES-TEVA-2018-ES-989791

PATIENT
  Age: 41 Year
  Sex: Female

DRUGS (6)
  1. CARBOPLATINO (2323A) [Suspect]
     Active Substance: CARBOPLATIN
     Indication: BREAST CANCER
     Dosage: 590 MG
     Route: 042
     Dates: start: 20180223, end: 20180223
  2. IVEMEND 115 MG POLVO PARA SOLUCION PARA PERFUSION 1 [Concomitant]
     Route: 065
     Dates: start: 20180223, end: 20180223
  3. FORTECORTIN 4 MG COMPRIMIDOS, 30 COMPRIMIDOS [Concomitant]
     Active Substance: DEXAMETHASONE
     Dosage: 1 CP DIA
     Route: 048
     Dates: start: 20180224, end: 20180227
  4. DOCETAXEL. [Suspect]
     Active Substance: DOCETAXEL
     Indication: BREAST CANCER
     Dosage: 125 MG
     Route: 042
     Dates: start: 20180223, end: 20180223
  5. TRASTUZUMAB (1168A) [Suspect]
     Active Substance: TRASTUZUMAB
     Indication: BREAST CANCER
     Dosage: 455 MG
     Route: 042
     Dates: start: 20180223, end: 20180223
  6. DEXAMETASONA (722A) [Concomitant]
     Active Substance: DEXAMETHASONE
     Dosage: 12 MG DIA
     Dates: start: 20180223, end: 20180223

REACTIONS (3)
  - Large intestine perforation [Fatal]
  - Colitis [Fatal]
  - Agranulocytosis [Fatal]

NARRATIVE: CASE EVENT DATE: 20180302
